FAERS Safety Report 8429251-6 (Version None)
Quarter: 2012Q2

REPORT INFORMATION
  Report Type: 
  Country: None (occurrence: None)
  Receive Date: 20120612
  Receipt Date: 20120607
  Transmission Date: 20120825
  Serious: Yes (Other)
  Sender: FDA-Public Use
  Company Number: PHHY2011JP106222

PATIENT
  Sex: Female

DRUGS (2)
  1. FARESTON [Concomitant]
     Dosage: 120 MG, UNK
     Route: 048
     Dates: start: 20060301
  2. ZOMETA [Suspect]
     Indication: METASTASES TO BONE
     Dosage: 4 MG,
     Route: 041
     Dates: start: 20060705

REACTIONS (8)
  - PAIN [None]
  - OSTEOMYELITIS [None]
  - PULPITIS DENTAL [None]
  - LYMPH NODE PAIN [None]
  - BONE LESION [None]
  - GINGIVAL INFECTION [None]
  - PERIODONTITIS [None]
  - OSTEONECROSIS OF JAW [None]
